FAERS Safety Report 6997001-6 (Version None)
Quarter: 2010Q3

REPORT INFORMATION
  Report Type: 
  Country: None (occurrence: None)
  Receive Date: 20100918
  Receipt Date: 20090817
  Transmission Date: 20110219
  Serious: No
  Sender: FDA-Public Use
  Company Number: US-WYE-H10628609

PATIENT
  Sex: Male

DRUGS (3)
  1. EFFEXOR [Suspect]
     Indication: PAIN
     Dosage: UNKNOWN
     Dates: start: 20030101
  2. EFFEXOR [Suspect]
     Indication: DEPRESSION
  3. AMBIEN [Suspect]
     Indication: SLEEP DISORDER
     Dosage: UNKNOWN
     Route: 048
     Dates: start: 20030101

REACTIONS (4)
  - ABNORMAL BEHAVIOUR [None]
  - CRYING [None]
  - NIGHTMARE [None]
  - THERAPEUTIC RESPONSE UNEXPECTED [None]
